FAERS Safety Report 5377595-7 (Version None)
Quarter: 2007Q3

REPORT INFORMATION
  Report Type: 
  Country: None (occurrence: None)
  Receive Date: 20070703
  Receipt Date: 20070619
  Transmission Date: 20080115
  Serious: Yes (Death)
  Sender: FDA-Public Use
  Company Number: NL-GENENTECH-243480

PATIENT
  Sex: Male

DRUGS (7)
  1. BEVACIZUMAB [Suspect]
     Indication: ACUTE MYELOID LEUKAEMIA
     Dosage: 400 MG, Q2W
     Route: 042
     Dates: start: 20070403, end: 20070522
  2. DAUNORUBICIN HCL [Suspect]
     Indication: ACUTE MYELOID LEUKAEMIA
     Dosage: 90 MG, UNK
     Route: 042
     Dates: start: 20070403, end: 20070405
  3. CYTARABINE [Suspect]
     Indication: ACUTE MYELOID LEUKAEMIA
     Dosage: 400 MG, UNK
     Route: 042
     Dates: start: 20070403, end: 20070513
  4. NOVORAPID [Concomitant]
     Indication: DRUG USE FOR UNKNOWN INDICATION
  5. NYSTATINE [Concomitant]
     Indication: DRUG USE FOR UNKNOWN INDICATION
     Dates: start: 20070529
  6. VANCOMYCIN HCL [Concomitant]
     Indication: DRUG USE FOR UNKNOWN INDICATION
  7. TAZOCIN [Concomitant]
     Indication: DRUG USE FOR UNKNOWN INDICATION

REACTIONS (1)
  - MENINGITIS [None]
